FAERS Safety Report 7125529 (Version 6)
Quarter: 2013Q2

REPORT INFORMATION
  Report Type: Spontaneous
  Country: US (occurrence: None)
  Receive Date: 20090923
  Receipt Date: 20121227
  Transmission Date: 20140414
  Serious: Yes (Hospitalization, Other)
  Sender: FDA-Public Use
  Company Number: PHEH2009US10727

PATIENT
  Age: 28 Year
  Sex: Female
  Weight: 59.2 kg

DRUGS (7)
  1. EXJADE [Suspect]
     Indication: SICKLE CELL ANAEMIA
     Dosage: 1000 MG, QD, ORAL
     Route: 048
     Dates: start: 20090810
  2. OXYCODONE (OXYCODONE) [Concomitant]
  3. FOLIC ACID [Concomitant]
  4. HYDROXYUREA [Concomitant]
  5. MULTIVITAMINS (ASCORBIC ACID, ERGOCALCIFEROL, FOLIC ACID, NICOTINAMIDE, PANTHENOL, RETINOL, RIBOFLAVIN, THIAMINE HYDROCHLORIDE) [Concomitant]
  6. ESTRACE [Concomitant]
  7. PERCOCET [Concomitant]

REACTIONS (13)
  - SICKLE CELL ANAEMIA WITH CRISIS [None]
  - WHITE BLOOD CELL COUNT INCREASED [None]
  - BLOOD CHLORIDE INCREASED [None]
  - BLOOD CALCIUM DECREASED [None]
  - BLOOD BILIRUBIN INCREASED [None]
  - CHEST PAIN [None]
  - NAUSEA [None]
  - PYREXIA [None]
  - VOMITING [None]
  - MALAISE [None]
  - DRUG DOSE OMISSION [None]
  - OCULAR ICTERUS [None]
  - BACK PAIN [None]
